FAERS Safety Report 9959869 (Version 1)
Quarter: 2014Q1

REPORT INFORMATION
  Report Type: Spontaneous
  Country: US (occurrence: None)
  Receive Date: 20140228
  Receipt Date: 20140228
  Transmission Date: 20141002
  Serious: Yes (Hospitalization, Other)
  Sender: FDA-Public Use
  Company Number: ADR-2014-00297

PATIENT
  Age: 78 Year
  Sex: Female

DRUGS (7)
  1. BACLOFEN INTRATHECAL [Suspect]
     Indication: TETANUS
     Dosage: SEE B.5
  2. BACLOFEN [Suspect]
     Indication: TETANUS
  3. DIAZEPAM (ORAL) [Suspect]
  4. CLONOPIN [Suspect]
  5. METRONIDAZOLE [Suspect]
     Dosage: EVERY 6 H FOR 10 DAYS
     Route: 042
  6. TETANUS IMMUNE GLOBULIN (HUMAN) [Suspect]
     Dosage: 500 UNITS IM, AS WELL AS TD VACCINE.
     Route: 030
  7. MIDAZOLAM INFUSION [Suspect]

REACTIONS (11)
  - Electroencephalogram abnormal [None]
  - Coma [None]
  - Autonomic nervous system imbalance [None]
  - Hypotension [None]
  - Hypertension [None]
  - Tachycardia [None]
  - Atrial fibrillation [None]
  - Meningitis [None]
  - Encephalopathy [None]
  - Muscle spasms [None]
  - Pain [None]
